FAERS Safety Report 10222618 (Version 1)
Quarter: 2014Q2

REPORT INFORMATION
  Report Type: Spontaneous
  Country: DE (occurrence: DE)
  Receive Date: 20140606
  Receipt Date: 20140606
  Transmission Date: 20141212
  Serious: Yes (Congenital Anomaly)
  Sender: FDA-Public Use
  Company Number: DE-WATSON-2013-25095

PATIENT
  Sex: Female

DRUGS (3)
  1. METFORMIN (UNKNOWN) [Suspect]
     Indication: POLYCYSTIC OVARIES
     Route: 064
  2. TRAMAL [Concomitant]
     Indication: TOOTHACHE
     Route: 064
  3. FOLSAURE [Concomitant]
     Indication: PROPHYLAXIS OF NEURAL TUBE DEFECT
     Route: 064

REACTIONS (3)
  - Meningomyelocele [Not Recovered/Not Resolved]
  - Ectopia cordis [Not Recovered/Not Resolved]
  - Gastroschisis [Not Recovered/Not Resolved]
